FAERS Safety Report 8887707 (Version 3)
Quarter: 2012Q4

REPORT INFORMATION
  Report Type: Report from Study
  Country: BR (occurrence: BR)
  Receive Date: 20121030
  Receipt Date: 20121030
  Transmission Date: 20130627
  Serious: Yes (Hospitalization)
  Sender: FDA-Public Use
  Company Number: BR-AMGEN-BRACT2011068098

PATIENT
  Age: 44 Year
  Sex: Female
  Weight: 79 kg

DRUGS (4)
  1. ETANERCEPT [Suspect]
     Indication: ANKYLOSING SPONDYLITIS
     Dosage: 50 mg, weekly
     Route: 058
     Dates: start: 20111020
  2. ETANERCEPT [Suspect]
     Dosage: 50 mg, once weekly
     Route: 058
     Dates: start: 201203
  3. PARACETAMOL WITH CODEINE PHOSPHATE [Concomitant]
     Dosage: 500 mg, UNK
  4. CYCLOBENZAPRINE HYDROCHLORIDE [Concomitant]
     Dosage: 10 mg, UNK

REACTIONS (5)
  - Monoplegia [Unknown]
  - Drug administration error [Unknown]
  - Injection site pain [Unknown]
  - Injection site erythema [Unknown]
  - Injection site haematoma [Unknown]
